FAERS Safety Report 6544826-7 (Version None)
Quarter: 2010Q1

REPORT INFORMATION
  Report Type: 
  Country: None (occurrence: None)
  Receive Date: 20100121
  Receipt Date: 20100112
  Transmission Date: 20100710
  Serious: Yes (Other)
  Sender: FDA-Public Use
  Company Number: US-JNJFOC-20100105731

PATIENT
  Age: 6 Year
  Sex: Male
  Weight: 21.77 kg

DRUGS (3)
  1. CONCERTA [Suspect]
     Indication: ATTENTION DEFICIT/HYPERACTIVITY DISORDER
     Route: 048
  2. CONCERTA [Suspect]
     Route: 048
  3. CLONIDINE [Concomitant]
     Indication: SLEEP DISORDER
     Route: 048

REACTIONS (5)
  - AGGRESSION [None]
  - DECREASED APPETITE [None]
  - HEADACHE [None]
  - HOSTILITY [None]
  - SELF INJURIOUS BEHAVIOUR [None]
